FAERS Safety Report 7387699-5 (Version None)
Quarter: 2011Q1

REPORT INFORMATION
  Report Type: 
  Country: None (occurrence: None)
  Receive Date: 20110331
  Receipt Date: 20101011
  Transmission Date: 20110831
  Serious: Yes (Hospitalization, Other)
  Sender: FDA-Public Use
  Company Number: US-BAYER-201020787NA

PATIENT
  Sex: Female
  Weight: 123.81 kg

DRUGS (12)
  1. UNCODEABLE ^UNCLASSIFIABLE^ [Concomitant]
     Indication: ASTHMA
     Dosage: UNK
     Dates: start: 20080104
  2. INDOCIN [Concomitant]
     Dosage: UNK
     Dates: start: 20080611, end: 20080616
  3. METOCLOPRAMIDE [Concomitant]
  4. PROMETHAZINE W/ CODEINE [Concomitant]
  5. ALBUTEROL [Concomitant]
     Indication: ASTHMA
     Dosage: UNK
     Dates: start: 20080104
  6. REGLAN [Concomitant]
     Indication: NAUSEA
     Dosage: UNK
     Dates: start: 20080611
  7. HYDROXYZINE HCL [Concomitant]
     Indication: ANXIETY
     Dosage: UNK
     Dates: start: 20080609
  8. PERCOCET [Concomitant]
     Indication: PAIN
  9. NEURONTIN [Concomitant]
  10. YASMIN [Suspect]
     Indication: ORAL CONTRACEPTION
     Dosage: AS USED DOSE: UNK
     Route: 048
     Dates: start: 20080527, end: 20080616
  11. IBUPROFEN [Concomitant]
     Indication: HEADACHE
     Dosage: UNK
     Dates: start: 20080304
  12. VICODIN [Concomitant]
     Indication: HEADACHE
     Dosage: UNK
     Dates: start: 20080609

REACTIONS (12)
  - TRANSVERSE SINUS THROMBOSIS [None]
  - HEMIPLEGIA [None]
  - DISTURBANCE IN ATTENTION [None]
  - EMOTIONAL DISTRESS [None]
  - EYELID PTOSIS [None]
  - DEPRESSION [None]
  - CONVULSION [None]
  - HEMIPARESIS [None]
  - SUPERIOR SAGITTAL SINUS THROMBOSIS [None]
  - HEADACHE [None]
  - AMNESIA [None]
  - TACHYCARDIA [None]
